FAERS Safety Report 6419750-0 (Version None)
Quarter: 2009Q4

REPORT INFORMATION
  Report Type: 
  Country: None (occurrence: None)
  Receive Date: 20091013
  Receipt Date: 20090825
  Transmission Date: 20100525
  Serious: No
  Sender: FDA-Public Use
  Company Number: 2009BM000204

PATIENT
  Age: 7 Year
  Sex: Male

DRUGS (1)
  1. KUVAN [Suspect]
     Indication: PHENYLKETONURIA
     Dosage: 700 MG;QD;PO
     Route: 048
     Dates: start: 20081201

REACTIONS (1)
  - ALOPECIA [None]
